FAERS Safety Report 11796460 (Version 1)
Quarter: 2015Q4

REPORT INFORMATION
  Report Type: Spontaneous
  Country: SK (occurrence: SK)
  Receive Date: 20151203
  Receipt Date: 20151203
  Transmission Date: 20160305
  Serious: Yes (Death, Other)
  Sender: FDA-Public Use
  Company Number: SK-CELGENE-SVK-2015116257

PATIENT
  Age: 59 Year
  Sex: Female

DRUGS (3)
  1. AZACITIDINE INJECTABLE [Suspect]
     Active Substance: AZACITIDINE
     Indication: MYELODYSPLASTIC SYNDROME
     Route: 065
     Dates: start: 20141211, end: 20150812
  2. EUTHYROX [Concomitant]
     Active Substance: LEVOTHYROXINE SODIUM
     Indication: THYROID DISORDER
     Route: 065
  3. DEFERASIROX [Concomitant]
     Active Substance: DEFERASIROX
     Indication: CHELATION THERAPY
     Route: 065

REACTIONS (3)
  - Haemorrhagic stroke [Fatal]
  - Acute myeloid leukaemia [Not Recovered/Not Resolved]
  - Sepsis [Fatal]

NARRATIVE: CASE EVENT DATE: 201509
